FAERS Safety Report 22656189 (Version 1)
Quarter: 2023Q2

REPORT INFORMATION
  Report Type: Spontaneous
  Country: US (occurrence: US)
  Receive Date: 20230629
  Receipt Date: 20230629
  Transmission Date: 20230722
  Serious: No
  Sender: FDA-Public Use
  Company Number: US-PFIZER INC-202300229705

PATIENT
  Age: 64 Year
  Sex: Male
  Weight: 111.13 kg

DRUGS (2)
  1. GENOTROPIN [Suspect]
     Active Substance: SOMATROPIN
     Indication: Growth hormone deficiency
     Dosage: 0.3 MG, 1X/DAY, [0.3MG INJECTED ONCE PER DAY]
     Dates: start: 20230619
  2. GENOTROPIN [Suspect]
     Active Substance: SOMATROPIN
     Indication: Hypopituitarism

REACTIONS (9)
  - Fatigue [Recovered/Resolved]
  - Malaise [Recovered/Resolved]
  - Anxiety [Recovered/Resolved]
  - Initial insomnia [Unknown]
  - Poor quality sleep [Unknown]
  - Somnolence [Unknown]
  - Asthenia [Unknown]
  - Vomiting [Unknown]
  - Restlessness [Unknown]

NARRATIVE: CASE EVENT DATE: 20230601
